FAERS Safety Report 6741225-X (Version None)
Quarter: 2010Q2

REPORT INFORMATION
  Report Type: 
  Country: None (occurrence: None)
  Receive Date: 20100526
  Receipt Date: 20100525
  Transmission Date: 20101027
  Serious: Yes (Other)
  Sender: FDA-Public Use
  Company Number: US-ROXANE LABORATORIES, INC.-2010-DE-02325GD

PATIENT
  Age: 69 Year
  Sex: Female

DRUGS (6)
  1. PREDNISONE TAB [Suspect]
     Indication: ASTHMA
     Dosage: 7.5 MG
     Route: 051
  2. CORTICOSTEROID [Suspect]
     Indication: ASTHMA
     Route: 055
  3. ENALAPRIL [Concomitant]
     Indication: HYPERTENSION
  4. FUROSEMIDE [Concomitant]
     Indication: HYPERTENSION
  5. BETA AGONIST [Concomitant]
     Indication: ASTHMA
     Route: 055
  6. MONTELUKAST SODIUM [Concomitant]
     Indication: ASTHMA

REACTIONS (3)
  - HISTOPLASMOSIS [None]
  - MOUTH ULCERATION [None]
  - ORAL FUNGAL INFECTION [None]
